FAERS Safety Report 4961841-5 (Version None)
Quarter: 2006Q1

REPORT INFORMATION
  Report Type: 
  Country: None (occurrence: None)
  Receive Date: 20060329
  Receipt Date: 20060315
  Transmission Date: 20060701
  Serious: Yes (Other)
  Sender: FDA-Public Use
  Company Number: CLOF-10204

PATIENT
  Age: 7 Year
  Sex: Male

DRUGS (1)
  1. CLOLAR [Suspect]
     Indication: ACUTE LYMPHOCYTIC LEUKAEMIA
     Dosage: 40 MG/M2 QD X 5 IV
     Route: 042
     Dates: start: 20060206, end: 20060210

REACTIONS (12)
  - BACTERIAL INFECTION [None]
  - CATHETER SITE INFECTION [None]
  - CENTRAL LINE INFECTION [None]
  - CEREBRAL INFARCTION [None]
  - CYTOMEGALOVIRUS INFECTION [None]
  - DIFFUSE VASCULITIS [None]
  - FAECAL INCONTINENCE [None]
  - MENTAL STATUS CHANGES [None]
  - NEUTROPENIA [None]
  - STAPHYLOCOCCAL INFECTION [None]
  - UNRESPONSIVE TO VERBAL STIMULI [None]
  - URINARY INCONTINENCE [None]
